FAERS Safety Report 24422819 (Version 1)
Quarter: 2024Q4

REPORT INFORMATION
  Report Type: Spontaneous
  Country: BR (occurrence: BR)
  Receive Date: 20241010
  Receipt Date: 20241010
  Transmission Date: 20250115
  Serious: Yes (Hospitalization, Other)
  Sender: PFIZER
  Company Number: BR-PFIZER INC-PV202400131098

PATIENT
  Age: 58 Year
  Sex: Female

DRUGS (6)
  1. TALIGLUCERASE ALFA [Suspect]
     Active Substance: TALIGLUCERASE ALFA
     Indication: Gaucher^s disease
     Dosage: 22 IU/KG, EVERY 15 DAYS
     Route: 042
     Dates: start: 202209
  2. TALIGLUCERASE ALFA [Suspect]
     Active Substance: TALIGLUCERASE ALFA
     Dosage: 22 IU/KG, EVERY 15 DAYS
     Route: 042
     Dates: start: 20240919
  3. ACETAMINOPHEN\TRAMADOL [Concomitant]
     Active Substance: ACETAMINOPHEN\TRAMADOL
  4. DIPYRONE [Concomitant]
     Active Substance: DIPYRONE
  5. LEVETIRACETAM [Concomitant]
     Active Substance: LEVETIRACETAM
  6. PREGABALIN [Concomitant]
     Active Substance: PREGABALIN
     Dosage: UNK

REACTIONS (2)
  - Multiple fractures [Unknown]
  - Spinal pain [Unknown]
